FAERS Safety Report 9058927 (Version 1)
Quarter: 2013Q1

REPORT INFORMATION
  Report Type: Spontaneous
  Country: US (occurrence: US)
  Receive Date: 20130211
  Receipt Date: 20130211
  Transmission Date: 20140127
  Serious: No
  Sender: FDA-Public Use
  Company Number: US-BRISTOL-MYERS SQUIBB COMPANY-16382376

PATIENT
  Sex: Male

DRUGS (2)
  1. GLUCOPHAGE [Suspect]
     Dosage: STARTED 5-6 YEARS AGO
  2. AMARYL [Suspect]

REACTIONS (1)
  - Hypoglycaemia [Unknown]
